FAERS Safety Report 8543724 (Version 2)
Quarter: 2013Q1

REPORT INFORMATION
  Report Type: Spontaneous
  Country: US (occurrence: US)
  Receive Date: 20120503
  Receipt Date: 20130103
  Transmission Date: 20140127
  Serious: Yes (Hospitalization)
  Sender: FDA-Public Use
  Company Number: US-BAYER-2012-041622

PATIENT
  Age: 21 Year
  Sex: Female
  Weight: 52.15 kg

DRUGS (1)
  1. YASMIN [Suspect]
     Indication: PREMENSTRUAL SYNDROME
     Dosage: UNK
     Dates: start: 2004, end: 2005

REACTIONS (8)
  - Gallbladder injury [None]
  - Biliary dyskinesia [None]
  - Injury [None]
  - Emotional distress [None]
  - Pain [None]
  - General physical health deterioration [None]
  - Abdominal pain upper [None]
  - Nausea [None]
